FAERS Safety Report 13909939 (Version 1)
Quarter: 2017Q3

REPORT INFORMATION
  Report Type: Spontaneous
  Country: FR (occurrence: FR)
  Receive Date: 20170828
  Receipt Date: 20170828
  Transmission Date: 20171127
  Serious: Yes (Hospitalization, Other)
  Sender: FDA-Public Use
  Company Number: FR-009507513-1708FRA010951

PATIENT
  Age: 73 Year
  Sex: Female

DRUGS (3)
  1. NORSET [Suspect]
     Active Substance: MIRTAZAPINE
     Indication: DEPRESSION
     Dosage: 15 MG ONCE DAILY
     Route: 048
     Dates: start: 201705, end: 20170811
  2. ESOMEPRAZOLE MAGNESIUM. [Suspect]
     Active Substance: ESOMEPRAZOLE MAGNESIUM
     Dosage: 20 MG TWICE DAILY
     Route: 048
  3. SULFARLEM [Suspect]
     Active Substance: ANETHOLTRITHION
     Dosage: UNK
     Route: 048

REACTIONS (1)
  - Hepatocellular injury [Unknown]

NARRATIVE: CASE EVENT DATE: 20170810
